FAERS Safety Report 8168098-5 (Version None)
Quarter: 2012Q1

REPORT INFORMATION
  Report Type: 
  Country: None (occurrence: None)
  Receive Date: 20120227
  Receipt Date: 20120217
  Transmission Date: 20120608
  Serious: Yes (Disabling)
  Sender: FDA-Public Use
  Company Number: PHHY2012JP004805

PATIENT
  Sex: Male
  Weight: 60 kg

DRUGS (6)
  1. ROCORNAL [Concomitant]
     Indication: CAROTID ARTERIOSCLEROSIS
     Dosage: 100 MG, UNK
     Dates: start: 20090623
  2. ROXATIDINE ACETATE HCL [Concomitant]
     Indication: GASTRITIS
     Dosage: 75 MG, UNK
     Route: 048
     Dates: start: 20060420
  3. FERROUS CITRATE [Concomitant]
     Indication: IRON DEFICIENCY ANAEMIA
     Dosage: 100 MG, UNK
     Route: 048
     Dates: start: 20110930
  4. MANIDILOT [Suspect]
     Indication: HYPERTENSION
     Dosage: 20 MG, UNK
     Route: 048
     Dates: start: 20111125, end: 20120112
  5. RASILEZ [Suspect]
     Indication: HYPERTENSION
     Dosage: 150 MG, DAILY
     Route: 048
     Dates: start: 20111125, end: 20120112
  6. LIVALO [Concomitant]
     Dosage: 1 MG, UNK
     Route: 048
     Dates: start: 20090414, end: 20120112

REACTIONS (4)
  - PRURITUS [None]
  - DRUG ERUPTION [None]
  - ERYTHEMA [None]
  - RASH GENERALISED [None]
